FAERS Safety Report 7014351-8 (Version None)
Quarter: 2010Q3

REPORT INFORMATION
  Report Type: 
  Country: None (occurrence: None)
  Receive Date: 20100924
  Receipt Date: 20100924
  Transmission Date: 20110219
  Serious: Yes (Hospitalization)
  Sender: FDA-Public Use
  Company Number: None

PATIENT
  Age: 22 Year
  Sex: Female

DRUGS (2)
  1. RISPERDAL [Suspect]
     Dosage: PO
     Route: 048
  2. TRILEPTAL [Suspect]
     Dosage: PO
     Route: 048

REACTIONS (2)
  - NEUTROPENIA [None]
  - PNEUMONIA [None]
